FAERS Safety Report 7475633-9 (Version None)
Quarter: 2011Q2

REPORT INFORMATION
  Report Type: 
  Country: None (occurrence: None)
  Receive Date: 20110504
  Receipt Date: 20110420
  Transmission Date: 20111010
  Serious: Yes (Disabling)
  Sender: FDA-Public Use
  Company Number: JP-2011-10669

PATIENT
  Age: 85 Year
  Sex: Male

DRUGS (5)
  1. LUPRAC (TORASEMIDE) [Concomitant]
  2. SAMSCA [Suspect]
     Indication: CARDIAC FAILURE CONGESTIVE
     Dosage: 7.5 MG MILLIGRAM(S), QD,ORAL; 15 MG MILLGRAMIS),QD, ORAL
     Route: 048
     Dates: start: 20110404, end: 20110410
  3. SAMSCA [Suspect]
     Indication: CARDIAC FAILURE CONGESTIVE
     Dosage: 7.5 MG MILLIGRAM(S), QD,ORAL; 15 MG MILLGRAMIS),QD, ORAL
     Route: 048
     Dates: start: 20110331, end: 20110403
  4. SELARA (EPLERENONE) [Concomitant]
  5. LASIX [Concomitant]

REACTIONS (1)
  - TOXIC SKIN ERUPTION [None]
